FAERS Safety Report 23858019 (Version 1)
Quarter: 2024Q2

REPORT INFORMATION
  Report Type: Spontaneous
  Country: PL (occurrence: PL)
  Receive Date: 20240515
  Receipt Date: 20240515
  Transmission Date: 20240716
  Serious: Yes (Other)
  Sender: FDA-Public Use
  Company Number: PL-BEH-2024172003

PATIENT
  Sex: Male

DRUGS (2)
  1. HUMAN RHO(D) IMMUNE GLOBULIN [Suspect]
     Active Substance: HUMAN RHO(D) IMMUNE GLOBULIN
     Route: 064
  2. INSULIN NOS [Suspect]
     Active Substance: INSULIN NOS
     Route: 064

REACTIONS (3)
  - Pleural effusion [Recovering/Resolving]
  - Pneumothorax [Recovering/Resolving]
  - Foetal exposure during pregnancy [Unknown]
